FAERS Safety Report 6366401-X (Version None)
Quarter: 2009Q3

REPORT INFORMATION
  Report Type: 
  Country: None (occurrence: None)
  Receive Date: 20090915
  Receipt Date: 20090908
  Transmission Date: 20100115
  Serious: Yes (Hospitalization)
  Sender: FDA-Public Use
  Company Number: 2009SP020931

PATIENT
  Age: 66 Year
  Sex: Male

DRUGS (3)
  1. RIBAVIRIN [Suspect]
     Indication: HEPATITIS C
     Dosage: 600 MG; QAM;, 400 MG; QPM;
  2. PEGINTERFERON ALFA-2A (PEGINTERFERON ALFA-2A) [Suspect]
     Indication: HEPATITIS C
     Dosage: 180 MCG; QW;
  3. ANTIHYPERTENSIVE [Concomitant]

REACTIONS (1)
  - SYNCOPE [None]
